FAERS Safety Report 17896518 (Version 1)
Quarter: 2020Q2

REPORT INFORMATION
  Report Type: Spontaneous
  Country: FR (occurrence: FR)
  Receive Date: 20200615
  Receipt Date: 20200615
  Transmission Date: 20200714
  Serious: Yes (Hospitalization)
  Sender: FDA-Public Use
  Company Number: FR-MYLANLABS-2020M1055982

PATIENT
  Age: 85 Year
  Sex: Female
  Weight: 67 kg

DRUGS (1)
  1. FONDAPARINUX [Suspect]
     Active Substance: FONDAPARINUX
     Indication: THROMBOSIS PROPHYLAXIS
     Dosage: 2.5 MILLIGRAM (1 DOSAGE FORM), QD
     Route: 058
     Dates: start: 20200418, end: 20200505

REACTIONS (3)
  - Hepatic enzyme increased [Recovering/Resolving]
  - Anaemia [Recovering/Resolving]
  - Haematoma muscle [Recovering/Resolving]

NARRATIVE: CASE EVENT DATE: 20200505
